FAERS Safety Report 7941381-1 (Version None)
Quarter: 2011Q4

REPORT INFORMATION
  Report Type: 
  Country: None (occurrence: None)
  Receive Date: 20111122
  Receipt Date: 20111122
  Transmission Date: 20120403
  Serious: No
  Sender: FDA-Public Use
  Company Number: None

PATIENT
  Sex: Female
  Weight: 72.5755 kg

DRUGS (1)
  1. BEYAZ [Suspect]
     Dosage: ORAL, DAILY

REACTIONS (3)
  - WEIGHT INCREASED [None]
  - RASH [None]
  - SWELLING [None]
